FAERS Safety Report 9982614 (Version 1)
Quarter: 2014Q1

REPORT INFORMATION
  Report Type: Report from Study
  Country: US (occurrence: US)
  Receive Date: 20140307
  Receipt Date: 20140307
  Transmission Date: 20141002
  Serious: No
  Sender: FDA-Public Use
  Company Number: US-ABBVIE-13P-163-1175818-00

PATIENT
  Age: 64 Year
  Sex: Female
  Weight: 88.08 kg

DRUGS (1)
  1. HUMIRA [Suspect]
     Indication: RHEUMATOID ARTHRITIS
     Dates: start: 20131018

REACTIONS (6)
  - Drug dose omission [Unknown]
  - Wrong technique in drug usage process [Unknown]
  - Incorrect dose administered [Unknown]
  - Injection site bruising [Recovered/Resolved]
  - Muscular weakness [Unknown]
  - Musculoskeletal stiffness [Not Recovered/Not Resolved]
